FAERS Safety Report 6765216-8 (Version None)
Quarter: 2010Q2

REPORT INFORMATION
  Report Type: 
  Country: None (occurrence: None)
  Receive Date: 20100610
  Receipt Date: 20100610
  Transmission Date: 20101027
  Serious: No
  Sender: FDA-Public Use
  Company Number: None

PATIENT
  Age: 51 Year
  Sex: Male
  Weight: 120.2032 kg

DRUGS (2)
  1. CIPROFLAXIN GENERIC 250 [Suspect]
     Indication: BRONCHITIS
     Dosage: 1 2 DAILY PO
     Route: 048
     Dates: start: 20100531, end: 20100608
  2. PREDNISOLONE TAB [Suspect]
     Indication: BRONCHITIS
     Dosage: 6/5/4/3/2/1 PO
     Route: 048
     Dates: start: 20100604, end: 20100608

REACTIONS (3)
  - HYPERSENSITIVITY [None]
  - PRURITUS [None]
  - RASH [None]
